FAERS Safety Report 14171264 (Version 1)
Quarter: 2017Q4

REPORT INFORMATION
  Report Type: Spontaneous
  Country: ZA (occurrence: ZA)
  Receive Date: 20171108
  Receipt Date: 20171108
  Transmission Date: 20180321
  Serious: Yes (Death, Other)
  Sender: FDA-Public Use
  Company Number: ZA-MYLANLABS-2017M1069569

PATIENT
  Age: 71 Year
  Sex: Male

DRUGS (6)
  1. MYLAN OXYBUTYNIN 5 MG [Suspect]
     Active Substance: OXYBUTYNIN
     Indication: INCONTINENCE
     Dosage: 5 MG, UNK
     Route: 048
  2. MYLAN ESCITALOPRAM 10 [Suspect]
     Active Substance: ESCITALOPRAM OXALATE
     Indication: DEPRESSION
     Dosage: 10 MG, UNK
     Route: 048
  3. EPILIM [Suspect]
     Active Substance: VALPROATE SODIUM
     Indication: EPILEPSY
     Dosage: 500 MG, UNK
     Route: 048
  4. CRESTOR [Suspect]
     Active Substance: ROSUVASTATIN CALCIUM
     Indication: BLOOD CHOLESTEROL ABNORMAL
     Dosage: 5 MG, UNK
     Route: 048
  5. TRANQIPAM [Suspect]
     Active Substance: LORAZEPAM
     Indication: STRESS
     Dosage: 1 MG, UNK
     Route: 048
  6. STILNOX [Suspect]
     Active Substance: ZOLPIDEM TARTRATE
     Indication: STRESS
     Dosage: 10 MG, UNK

REACTIONS (2)
  - Pneumonia [Not Recovered/Not Resolved]
  - Death [Fatal]

NARRATIVE: CASE EVENT DATE: 20170818
